FAERS Safety Report 5629389-2 (Version None)
Quarter: 2008Q1

REPORT INFORMATION
  Report Type: 
  Country: None (occurrence: None)
  Receive Date: 20080218
  Receipt Date: 20080214
  Transmission Date: 20080703
  Serious: Yes (Death)
  Sender: FDA-Public Use
  Company Number: IE-BAYER-200810306BNE

PATIENT
  Age: 66 Year
  Sex: Male

DRUGS (7)
  1. NEXAVAR [Suspect]
     Indication: HEPATIC NEOPLASM MALIGNANT
     Dosage: TOTAL DAILY DOSE: 800 MG
     Route: 048
     Dates: start: 20080117, end: 20080129
  2. DIAMICRON MR [Concomitant]
     Dosage: AS USED: 30 MG
  3. NEXIUM [Concomitant]
  4. COVERSYL [Concomitant]
  5. INSULIN [Concomitant]
  6. ASPIRIN [Concomitant]
  7. MEGACE [Concomitant]

REACTIONS (1)
  - OESOPHAGEAL VARICES HAEMORRHAGE [None]
